FAERS Safety Report 8363898-0 (Version None)
Quarter: 2012Q2

REPORT INFORMATION
  Report Type: 
  Country: None (occurrence: None)
  Receive Date: 20120516
  Receipt Date: 20120124
  Transmission Date: 20120825
  Serious: No
  Sender: FDA-Public Use
  Company Number: US-ALEXION-A201200133

PATIENT
  Sex: Female
  Weight: 113.3 kg

DRUGS (6)
  1. PREDNISONE TAB [Concomitant]
     Dosage: 7.5 MG, QD
  2. SYNTHROID [Concomitant]
     Dosage: 88 MCG, UNK
  3. SOLIRIS [Suspect]
     Indication: PAROXYSMAL NOCTURNAL HAEMOGLOBINURIA
     Dosage: 600 MG, QW
     Route: 042
  4. RANITIDINE [Concomitant]
     Dosage: 150 MG, QD
  5. BISOPROLOL FUMARATE [Concomitant]
     Dosage: 5 MG, QD
  6. SOLIRIS [Suspect]
     Dosage: 900 MG, Q2W
     Route: 042
     Dates: start: 20111118

REACTIONS (8)
  - RED BLOOD CELL COUNT ABNORMAL [None]
  - HAEMOGLOBIN ABNORMAL [None]
  - HAEMATOCRIT ABNORMAL [None]
  - PLATELET DISORDER [None]
  - AMENORRHOEA [None]
  - WHITE BLOOD CELL DISORDER [None]
  - JAUNDICE [None]
  - BLOOD LACTATE DEHYDROGENASE INCREASED [None]
